FAERS Safety Report 16065333 (Version 1)
Quarter: 2019Q1

REPORT INFORMATION
  Report Type: Spontaneous
  Country: US (occurrence: US)
  Receive Date: 20190313
  Receipt Date: 20190313
  Transmission Date: 20190418
  Serious: Yes (Other)
  Sender: FDA-Public Use
  Company Number: US-MALLINCKRODT-T201902148

PATIENT
  Age: 65 Year
  Sex: Female
  Weight: 43 kg

DRUGS (5)
  1. HYDROCODONE/ACETAMINOPHEN [Suspect]
     Active Substance: ACETAMINOPHEN\HYDROCODONE
     Dosage: 5/325 MG FOUR TIMES A DAY
     Route: 065
  2. FENTANYL TRANSDERMAL SYSTEM [Suspect]
     Active Substance: FENTANYL
     Indication: PAIN
     Dosage: 25 MCG/HR EVERY 48 HOURS
     Route: 062
     Dates: start: 201901
  3. FENTANYL TRANSDERMAL SYSTEM [Suspect]
     Active Substance: FENTANYL
     Indication: PAIN
     Dosage: UNK UG/HR, UNK
     Route: 062
     Dates: start: 20181214
  4. FENTANYL TRANSDERMAL SYSTEM [Suspect]
     Active Substance: FENTANYL
     Dosage: TWO 12.5 MCG/HR, CHANGE EVERY 72 HOURS
     Route: 062
     Dates: end: 201901
  5. HYDROCODONE/ACETAMINOPHEN [Suspect]
     Active Substance: ACETAMINOPHEN\HYDROCODONE
     Indication: PAIN
     Dosage: 5/325 MG TWICE A DAY
     Route: 065

REACTIONS (9)
  - Somnolence [Unknown]
  - Gastrectomy [Unknown]
  - Malaise [Unknown]
  - Herpes virus infection [Unknown]
  - Sciatica [Unknown]
  - Therapeutic response shortened [Unknown]
  - Drug tolerance [Unknown]
  - Panic attack [Unknown]
  - Nausea [Unknown]

NARRATIVE: CASE EVENT DATE: 201812
